FAERS Safety Report 7323746-4 (Version None)
Quarter: 2011Q1

REPORT INFORMATION
  Report Type: 
  Country: None (occurrence: None)
  Receive Date: 20110301
  Receipt Date: 20110217
  Transmission Date: 20110831
  Serious: Yes (Hospitalization)
  Sender: FDA-Public Use
  Company Number: US-ELI_LILLY_AND_COMPANY-US201102004924

PATIENT
  Age: 49 Year
  Sex: Male

DRUGS (14)
  1. COLACE [Concomitant]
     Dosage: 100 MG, 3/D
     Route: 048
  2. OMEPRAZOLE [Concomitant]
     Dosage: 20 MG, DAILY (1/D)
     Route: 048
  3. NEUPOGEN [Concomitant]
     Dosage: 300 UG, DAILY (1/D)
     Route: 058
  4. PREDNISONE [Concomitant]
     Dosage: 5 MG, AS DIRECTED
     Route: 048
  5. VITAMIN B-12 [Concomitant]
     Dosage: 100 UG, EVERY 9 WEEKS
     Route: 030
  6. LEVETIRACETAM [Concomitant]
     Dosage: 500 MG, 3/D
     Route: 048
  7. DECADRON [Concomitant]
     Dosage: 4 MG, 2/D
     Route: 048
  8. ACYCLOVIR [Concomitant]
     Dosage: 400 MG, 3/D
  9. ATOVAQUONE [Concomitant]
     Dosage: 1500 MG, DAILY (1/D)
     Route: 048
  10. NEURONTIN [Concomitant]
     Dosage: 300 MG, 3/D
     Route: 048
  11. SYNTHROID [Concomitant]
  12. CALCIUM CARBONATE W/VITAMIN D NOS [Concomitant]
     Dosage: 250 MG, 125U VITD
  13. DDAVP [Concomitant]
     Dosage: 1 SPRAY, Q PM
     Route: 050
  14. PEMETREXED [Suspect]
     Indication: CENTRAL NERVOUS SYSTEM LYMPHOMA
     Dosage: 1200 MG/M2, OTHER
     Route: 040
     Dates: start: 20110215, end: 20110215

REACTIONS (8)
  - DEHYDRATION [None]
  - DIZZINESS [None]
  - TOXICITY TO VARIOUS AGENTS [None]
  - TACHYCARDIA [None]
  - LYMPHOPENIA [None]
  - VOMITING [None]
  - CONVULSION [None]
  - METABOLIC DISORDER [None]
